FAERS Safety Report 15484271 (Version 1)
Quarter: 2018Q4

REPORT INFORMATION
  Report Type: Spontaneous
  Country: US (occurrence: US)
  Receive Date: 20181010
  Receipt Date: 20181010
  Transmission Date: 20190205
  Serious: Yes (Other)
  Sender: FDA-Public Use
  Company Number: None

PATIENT
  Age: 77 Year
  Sex: Female
  Weight: 54 kg

DRUGS (9)
  1. VOTRIENT [Suspect]
     Active Substance: PAZOPANIB HYDROCHLORIDE
     Indication: HEPATIC CANCER
     Route: 048
     Dates: start: 20180306
  2. VOTRIENT [Suspect]
     Active Substance: PAZOPANIB HYDROCHLORIDE
     Indication: BILE DUCT CANCER
     Route: 048
     Dates: start: 20180306
  3. CLOBETASOL [Concomitant]
     Active Substance: CLOBETASOL
  4. MAGNESIUM [Concomitant]
     Active Substance: MAGNESIUM
  5. MULTIVITAMIN [Concomitant]
     Active Substance: VITAMINS
  6. TORSEMIDE. [Concomitant]
     Active Substance: TORSEMIDE
  7. UREA. [Concomitant]
     Active Substance: UREA
  8. LIPITOR [Concomitant]
     Active Substance: ATORVASTATIN CALCIUM
  9. INDERAL [Concomitant]
     Active Substance: PROPRANOLOL HYDROCHLORIDE

REACTIONS (2)
  - Therapy cessation [None]
  - Palmar-plantar erythrodysaesthesia syndrome [None]

NARRATIVE: CASE EVENT DATE: 20181010
